FAERS Safety Report 5416795-4 (Version None)
Quarter: 2007Q3

REPORT INFORMATION
  Report Type: 
  Country: None (occurrence: None)
  Receive Date: 20070816
  Receipt Date: 20070807
  Transmission Date: 20080115
  Serious: Yes (Other)
  Sender: FDA-Public Use
  Company Number: JP-ROCHE-506607

PATIENT
  Age: 42 Year
  Sex: Male

DRUGS (12)
  1. VALIXA [Suspect]
     Indication: CYTOMEGALOVIRUS OESOPHAGITIS
     Route: 048
     Dates: start: 20060707, end: 20060713
  2. BAKTAR [Concomitant]
     Dosage: 25 JUNE 2005 TO 24 JULY 2006: 9 TABLETS DAILY. FROM 25 JULY 2006, DOSAGE DECREASED TO 2 TABLETS DAI+
     Route: 048
     Dates: start: 20060625
  3. DIFLUCAN [Concomitant]
     Dates: start: 20060630, end: 20060713
  4. FUNGIZONE [Concomitant]
     Dosage: FIRST THERAPY FROM 14 JULY 2006 TO 01 AUGUST 2006. SECOND THERAPY FROM 05 SEPTEMBER 2006 TO 25 SEPT+
     Route: 048
     Dates: start: 20060714, end: 20060925
  5. NORVIR [Concomitant]
     Dosage: DRUG REPORTED AS NORVIR_SOFT.
     Route: 048
     Dates: start: 20060905
  6. REYATAZ [Concomitant]
     Route: 048
     Dates: start: 20060905
  7. EPZICOM [Concomitant]
     Route: 048
     Dates: start: 20060905
  8. CLARITHROMYCIN [Concomitant]
     Dosage: FIRST THERAPY FROM 25 SEPTEMBER 2006 TO 02 OCTOBER 2006. SECOND THERAPY FROM 10 OCTOBER 2006 TO 11 +
     Route: 048
     Dates: start: 20060925, end: 20061211
  9. ESANBUTOL [Concomitant]
     Route: 048
     Dates: start: 20060925
  10. ZITHROMAC [Concomitant]
     Dosage: FIRST THERAPY FROM 03 OCTOBER 2006 TO 09 OCTOBER 2006. SECOND THERAPY FROM 12 DECEMBER 2006 TO 22 J+
     Route: 048
     Dates: start: 20061003, end: 20070122
  11. RIFADIN [Concomitant]
     Route: 048
     Dates: start: 20061010
  12. DOXORUBICIN [Concomitant]
     Dosage: DOSAGE REGIMEN: 30 MG EVERY 3-4 WEEKS.
     Dates: start: 20061121

REACTIONS (2)
  - KAPOSI'S SARCOMA [None]
  - VISUAL FIELD DEFECT [None]
